FAERS Safety Report 8968289 (Version 1)
Quarter: 2012Q4

REPORT INFORMATION
  Report Type: 
  Country: US (occurrence: US)
  Receive Date: 20121218
  Receipt Date: 20121218
  Transmission Date: 20130627
  Serious: Yes (Hospitalization)
  Sender: FDA-Public Use
  Company Number: US-BAYER-2012-130324

PATIENT
  Age: 24 Year
  Sex: Female

DRUGS (4)
  1. YAZ [Suspect]
     Indication: BIRTH CONTROL
  2. BEYAZ [Suspect]
  3. NORCO [Concomitant]
     Indication: PAIN
     Dosage: 5/325
  4. MUPIROCIN [Concomitant]
     Indication: MRSA COLONIZATION
     Route: 061

REACTIONS (1)
  - Deep vein thrombosis [Recovered/Resolved]
